FAERS Safety Report 18589451 (Version 1)
Quarter: 2020Q4

REPORT INFORMATION
  Report Type: Spontaneous
  Country: JP (occurrence: JP)
  Receive Date: 20201208
  Receipt Date: 20201208
  Transmission Date: 20210114
  Serious: Yes (Other)
  Sender: FDA-Public Use
  Company Number: JP-009507513-2012JPN000019J

PATIENT
  Sex: Female

DRUGS (2)
  1. NU-LOTAN TABLETS 50MG [Suspect]
     Active Substance: LOSARTAN
     Indication: CARDIOPLEGIA
  2. NU-LOTAN TABLETS 50MG [Suspect]
     Active Substance: LOSARTAN
     Indication: NEPHROPROTECTIVE THERAPY
     Dosage: 50 MILLIGRAM
     Route: 048

REACTIONS (6)
  - Hyperhidrosis [Unknown]
  - Hot flush [Unknown]
  - Nephrotic syndrome [Unknown]
  - Dizziness postural [Unknown]
  - Asthenia [Unknown]
  - Product use in unapproved indication [Unknown]
